FAERS Safety Report 8575893-7 (Version None)
Quarter: 2012Q3

REPORT INFORMATION
  Report Type: 
  Country: None (occurrence: None)
  Receive Date: 20120807
  Receipt Date: 20120727
  Transmission Date: 20120928
  Serious: Yes (Hospitalization, Other)
  Sender: FDA-Public Use
  Company Number: US-BAYER-2011-075614

PATIENT
  Age: 38 Year
  Sex: Female
  Weight: 62.132 kg

DRUGS (7)
  1. LORAZEPAM [Concomitant]
  2. POTASSIUM CHLORIDE [Concomitant]
  3. YAZ [Suspect]
     Dosage: UNK
     Dates: start: 20071001, end: 20100601
  4. PHENERGAN HCL [Concomitant]
  5. PROTONIX [Concomitant]
  6. DEMEROL [Concomitant]
  7. CIPROFLOXACIN HCL [Concomitant]

REACTIONS (4)
  - INJURY [None]
  - CHOLECYSTITIS ACUTE [None]
  - BILE DUCT STONE [None]
  - GALLBLADDER INJURY [None]
